FAERS Safety Report 16249806 (Version 1)
Quarter: 2019Q2

REPORT INFORMATION
  Report Type: Spontaneous
  Country: US (occurrence: US)
  Receive Date: 20190429
  Receipt Date: 20190429
  Transmission Date: 20190711
  Serious: No
  Sender: FDA-Public Use
  Company Number: US-MYLANLABS-2019M1034823

PATIENT
  Sex: Male
  Weight: 100 kg

DRUGS (1)
  1. CLONAZEPAM MYLAN [Suspect]
     Active Substance: CLONAZEPAM
     Indication: MUSCLE SPASMS
     Dosage: UNK UNK, TID
     Route: 065

REACTIONS (1)
  - Drug ineffective [Unknown]
